FAERS Safety Report 13661259 (Version 1)
Quarter: 2017Q2

REPORT INFORMATION
  Report Type: Report from Study
  Country: US (occurrence: US)
  Receive Date: 20170616
  Receipt Date: 20170616
  Transmission Date: 20170830
  Serious: No
  Sender: FDA-Public Use
  Company Number: US-US WORLDMEDS, LLC-USW201702-000348

PATIENT
  Age: 76 Year
  Sex: Male
  Weight: 96.16 kg

DRUGS (9)
  1. APOKYN [Suspect]
     Active Substance: APOMORPHINE HYDROCHLORIDE
     Indication: PARKINSON^S DISEASE
     Dates: start: 20150301
  2. METOPROLOL. [Concomitant]
     Active Substance: METOPROLOL
  3. LISINOPRIL. [Concomitant]
     Active Substance: LISINOPRIL
  4. SINEMET [Concomitant]
     Active Substance: CARBIDOPA\LEVODOPA
  5. KLORCON [Concomitant]
  6. DIGOXIN. [Concomitant]
     Active Substance: DIGOXIN
  7. XARELTO [Concomitant]
     Active Substance: RIVAROXABAN
  8. MIDRODINE HCL [Concomitant]
  9. BUMETANIDE. [Concomitant]
     Active Substance: BUMETANIDE

REACTIONS (1)
  - Injection site reaction [Recovered/Resolved]

NARRATIVE: CASE EVENT DATE: 20170201
